FAERS Safety Report 23672766 (Version 1)
Quarter: 2024Q1

REPORT INFORMATION
  Report Type: Spontaneous
  Country: US (occurrence: None)
  Receive Date: 20240325
  Receipt Date: 20240325
  Transmission Date: 20240410
  Serious: No
  Sender: FDA-Public Use
  Company Number: None

PATIENT
  Age: 60 Year
  Sex: Female
  Weight: 63 kg

DRUGS (8)
  1. BOTOX [Suspect]
     Active Substance: ONABOTULINUMTOXINA
     Indication: Migraine without aura
     Dosage: OTHER FREQUENCY : EVERY 84-90 DAYS;?OTHER ROUTE : HEAD, FACE AND NECK;?
     Route: 050
     Dates: start: 20240321
  2. DICLOFENAC [Concomitant]
     Active Substance: DICLOFENAC
  3. FIORICET [Concomitant]
     Active Substance: ACETAMINOPHEN\BUTALBITAL\CAFFEINE
  4. PROCHLORPERAZINE [Concomitant]
     Active Substance: PROCHLORPERAZINE
  5. QULIPTA [Concomitant]
     Active Substance: ATOGEPANT
  6. SLO-MAG [Concomitant]
  7. SYNTHROID [Concomitant]
     Active Substance: LEVOTHYROXINE SODIUM
  8. VITAMIN D [Concomitant]
     Active Substance: VITAMIN D NOS

REACTIONS (2)
  - Swelling face [None]
  - Influenza like illness [None]

NARRATIVE: CASE EVENT DATE: 20240324
